FAERS Safety Report 7996078-9 (Version None)
Quarter: 2011Q4

REPORT INFORMATION
  Report Type: 
  Country: None (occurrence: None)
  Receive Date: 20111216
  Receipt Date: 20111213
  Transmission Date: 20120403
  Serious: Yes (Life-Threatening, Hospitalization, Other)
  Sender: FDA-Public Use
  Company Number: 2011MA017553

PATIENT
  Sex: Female

DRUGS (4)
  1. ALCOHOL [Suspect]
  2. OXYCODONE HCL [Suspect]
  3. LORAZEPAM [Suspect]
     Indication: ANXIETY
     Dosage: 1 MG;PRN;PO
     Route: 048
     Dates: start: 20110901, end: 20111101
  4. VALIUM [Suspect]

REACTIONS (3)
  - CARDIAC ARREST [None]
  - RESPIRATORY ARREST [None]
  - MULTIPLE DRUG OVERDOSE [None]
